FAERS Safety Report 8428240-5 (Version None)
Quarter: 2012Q2

REPORT INFORMATION
  Report Type: 
  Country: None (occurrence: None)
  Receive Date: 20120611
  Receipt Date: 20120608
  Transmission Date: 20120825
  Serious: Yes (Death)
  Sender: FDA-Public Use
  Company Number: ES-BAXTER-2012BAX008155

PATIENT
  Age: 24 Year
  Sex: Female

DRUGS (2)
  1. CLOFARABINE [Suspect]
  2. CYCLOPHOSPHAMIDE [Suspect]

REACTIONS (1)
  - DEATH [None]
